FAERS Safety Report 7450101-9 (Version None)
Quarter: 2011Q1

REPORT INFORMATION
  Report Type: 
  Country: None (occurrence: None)
  Receive Date: 20110302
  Receipt Date: 20101220
  Transmission Date: 20110831
  Serious: No
  Sender: FDA-Public Use
  Company Number: 024058

PATIENT
  Sex: Female
  Weight: 76 kg

DRUGS (4)
  1. MULTI-VITAMINS [Concomitant]
  2. CIMZIA [Suspect]
     Indication: RHEUMATOID ARTHRITIS
     Dosage: (400 MG 1X/MONTH SUBCUTANEOUS)
     Route: 058
     Dates: start: 20100129
  3. CITRACAL + D [Concomitant]
  4. PREDNISONE [Concomitant]

REACTIONS (2)
  - HYPERHIDROSIS [None]
  - NIGHT SWEATS [None]
